FAERS Safety Report 6091141-4 (Version None)
Quarter: 2009Q1

REPORT INFORMATION
  Report Type: 
  Country: None (occurrence: None)
  Receive Date: 20090225
  Receipt Date: 20090213
  Transmission Date: 20090719
  Serious: Yes (Other)
  Sender: FDA-Public Use
  Company Number: FR-PFIZER INC-2009173940

PATIENT

DRUGS (1)
  1. ATARAX [Suspect]
     Indication: SEDATION
     Dosage: 10 ML, 1X/DAY
     Route: 048

REACTIONS (2)
  - CONVULSION [None]
  - PETIT MAL EPILEPSY [None]
